FAERS Safety Report 9842252 (Version 2)
Quarter: 2014Q1

REPORT INFORMATION
  Report Type: Spontaneous
  Country: DE (occurrence: DE)
  Receive Date: 20140124
  Receipt Date: 20140129
  Transmission Date: 20141002
  Serious: Yes (Other)
  Sender: FDA-Public Use
  Company Number: DE-GLAXOSMITHKLINE-D0082570A

PATIENT
  Age: 12 Year
  Sex: Male

DRUGS (4)
  1. FLUTICASONE PROPIONATE [Suspect]
     Dosage: 100MCG TWICE PER DAY
     Route: 055
  2. FLUTIDE JUNIOR [Suspect]
     Route: 055
  3. MICARDIS [Concomitant]
     Route: 048
  4. JODID [Concomitant]
     Route: 048

REACTIONS (1)
  - Glaucoma [Unknown]
